FAERS Safety Report 11021936 (Version 2)
Quarter: 2015Q2

REPORT INFORMATION
  Report Type: Report from Study
  Country: US (occurrence: US)
  Receive Date: 20150413
  Receipt Date: 20150414
  Transmission Date: 20150821
  Serious: Yes (Hospitalization, Other)
  Sender: FDA-Public Use
  Company Number: PHHY2014US144312

PATIENT
  Age: 23 Year
  Sex: Female

DRUGS (9)
  1. MYCOPHENOLATE MOFETIL. [Suspect]
     Active Substance: MYCOPHENOLATE MOFETIL
     Dosage: 360 MG, QID
     Route: 048
     Dates: start: 20130814, end: 20140126
  2. MYCOPHENOLATE MOFETIL. [Suspect]
     Active Substance: MYCOPHENOLATE MOFETIL
     Dosage: 360 MG, QID
     Route: 048
     Dates: start: 20140316
  3. TACROLIMUS. [Suspect]
     Active Substance: TACROLIMUS
     Dosage: 1.5 MG, BID
     Route: 048
     Dates: start: 20140109, end: 20140127
  4. TACROLIMUS. [Suspect]
     Active Substance: TACROLIMUS
     Dosage: 3.0 MG, BID
     Route: 048
     Dates: start: 20140214
  5. TACROLIMUS. [Suspect]
     Active Substance: TACROLIMUS
     Dosage: 1 MG, BID
     Route: 048
     Dates: start: 20140129, end: 20140209
  6. SIMULECT [Suspect]
     Active Substance: BASILIXIMAB
     Indication: RENAL TRANSPLANT
     Dosage: 20 MG, TWICE
     Route: 042
     Dates: start: 20130808, end: 20130812
  7. MYCOPHENOLATE MOFETIL. [Suspect]
     Active Substance: MYCOPHENOLATE MOFETIL
     Indication: RENAL TRANSPLANT
     Dosage: 500 MG, QID
     Route: 048
     Dates: start: 20130809, end: 20130813
  8. TACROLIMUS. [Suspect]
     Active Substance: TACROLIMUS
     Indication: RENAL TRANSPLANT
     Dosage: 5 MG, BID
     Route: 048
     Dates: start: 20130809, end: 20130809
  9. TACROLIMUS. [Suspect]
     Active Substance: TACROLIMUS
     Dosage: 2.5 MG, (1.5 MG IN AM AND 1 MG IN PM)
     Route: 048
     Dates: start: 20140128, end: 20140128

REACTIONS (18)
  - Rhinorrhoea [Unknown]
  - Blood creatinine increased [Unknown]
  - Kidney transplant rejection [Unknown]
  - Sinus tachycardia [Unknown]
  - Chills [Unknown]
  - Asthma [Recovering/Resolving]
  - Back pain [Unknown]
  - Bacterial sepsis [Recovered/Resolved]
  - Vomiting [Unknown]
  - Cough [Recovering/Resolving]
  - Chest pain [Recovered/Resolved]
  - Dyspnoea [Recovered/Resolved]
  - Upper respiratory tract infection [Not Recovered/Not Resolved]
  - Pyrexia [Unknown]
  - Malaise [Recovering/Resolving]
  - Painful respiration [Unknown]
  - Sinus congestion [Unknown]
  - Nausea [Unknown]

NARRATIVE: CASE EVENT DATE: 201310
